FAERS Safety Report 5926991-5 (Version None)
Quarter: 2008Q4

REPORT INFORMATION
  Report Type: 
  Country: None (occurrence: None)
  Receive Date: 20081021
  Receipt Date: 20081021
  Transmission Date: 20090506
  Serious: Yes (Other)
  Sender: FDA-Public Use
  Company Number: None

PATIENT
  Sex: Female
  Weight: 59.8748 kg

DRUGS (1)
  1. LAMOTRIGINE [Suspect]
     Indication: BIPOLAR I DISORDER
     Dosage: 100MG, 1 1/2 TABS 1 DAILY ORAL
     Route: 048
     Dates: start: 20080920, end: 20081006

REACTIONS (3)
  - AGITATION [None]
  - DEPRESSION [None]
  - PRODUCT QUALITY ISSUE [None]
